FAERS Safety Report 9188713 (Version 1)
Quarter: 2013Q1

REPORT INFORMATION
  Report Type: Spontaneous
  Country: BR (occurrence: BR)
  Receive Date: 20130325
  Receipt Date: 20130325
  Transmission Date: 20140127
  Serious: Yes (Other)
  Sender: FDA-Public Use
  Company Number: BR-PFIZER INC-2013091618

PATIENT
  Age: 88 Year
  Sex: Female

DRUGS (6)
  1. XALATAN [Suspect]
     Indication: GLAUCOMA
     Dosage: 1 DROP IN EACH EYE, ONCE A DAY
     Route: 047
     Dates: start: 20030318
  2. XALATAN [Suspect]
     Indication: INTRAOCULAR PRESSURE INCREASED
  3. AMARYL [Concomitant]
     Indication: DIABETES MELLITUS MANAGEMENT
     Dosage: 1 DF, 1X/DAY
     Dates: start: 20090318
  4. PROLOPA [Concomitant]
     Indication: HORMONE THERAPY
     Dosage: 2 DF, DAILY
  5. PURAN T4 [Concomitant]
     Indication: PARKINSON^S DISEASE
     Dosage: 2 TABLETS, 1X/DAY
     Dates: start: 20090318
  6. SIMVASTATIN [Concomitant]
     Indication: BLOOD CHOLESTEROL
     Dosage: 2 DF, 1X/DAY

REACTIONS (4)
  - Retinal degeneration [Not Recovered/Not Resolved]
  - Cataract [Unknown]
  - Oedema peripheral [Not Recovered/Not Resolved]
  - Drug ineffective [Recovered/Resolved]
